FAERS Safety Report 17107752 (Version 1)
Quarter: 2019Q4

REPORT INFORMATION
  Report Type: Spontaneous
  Country: ZA (occurrence: ZA)
  Receive Date: 20191203
  Receipt Date: 20191203
  Transmission Date: 20200122
  Serious: Yes (Other)
  Sender: FDA-Public Use
  Company Number: ZA-MYLANLABS-2019M1118806

PATIENT
  Sex: Female
  Weight: 82 kg

DRUGS (1)
  1. HYAN [Suspect]
     Active Substance: LEVONORGESTREL
     Indication: PROPHYLAXIS
     Dosage: 1 DOSAGE FORM, QD
     Dates: start: 20191020, end: 20191114

REACTIONS (3)
  - Hypertension [Recovered/Resolved]
  - Suppressed lactation [Recovering/Resolving]
  - Maternal exposure during breast feeding [Unknown]
